FAERS Safety Report 17684056 (Version 1)
Quarter: 2020Q2

REPORT INFORMATION
  Report Type: Spontaneous
  Country: IT (occurrence: IT)
  Receive Date: 20200420
  Receipt Date: 20200420
  Transmission Date: 20200714
  Serious: Yes (Other)
  Sender: FDA-Public Use
  Company Number: IT-MYLANLABS-2020M1039274

PATIENT
  Age: 6 Decade
  Sex: Male

DRUGS (6)
  1. EVEROLIMUS. [Suspect]
     Active Substance: EVEROLIMUS
     Indication: NEUROENDOCRINE TUMOUR OF THE LUNG METASTATIC
     Dosage: 10 MILLIGRAM, QD
     Route: 048
  2. SUNITINIB [Suspect]
     Active Substance: SUNITINIB
     Indication: METASTASES TO LIVER
  3. EVEROLIMUS. [Suspect]
     Active Substance: EVEROLIMUS
     Indication: METASTASES TO LIVER
  4. INSULIN [Concomitant]
     Active Substance: INSULIN NOS
     Indication: TYPE 2 DIABETES MELLITUS
     Route: 065
  5. TEMOZOLOMIDE. [Concomitant]
     Active Substance: TEMOZOLOMIDE
     Indication: NEUROENDOCRINE TUMOUR OF THE LUNG
     Dosage: (5 CONSECUTIVE DAYS IN A 28-DAY TREATMENT CYCLE)
     Route: 048
  6. SUNITINIB [Suspect]
     Active Substance: SUNITINIB
     Indication: NEUROENDOCRINE TUMOUR OF THE LUNG METASTATIC
     Dosage: 37.5 MILLIGRAM, QD
     Route: 048

REACTIONS (6)
  - Skin ulcer [Recovered/Resolved]
  - Off label use [Recovered/Resolved]
  - Stomatitis [Recovered/Resolved]
  - Osteomyelitis [Recovered/Resolved]
  - Hypertension [Recovered/Resolved]
  - Interstitial lung disease [Unknown]
